FAERS Safety Report 5386632-5 (Version None)
Quarter: 2007Q3

REPORT INFORMATION
  Report Type: 
  Country: None (occurrence: None)
  Receive Date: 20070713
  Receipt Date: 20070705
  Transmission Date: 20080115
  Serious: Yes (Hospitalization)
  Sender: FDA-Public Use
  Company Number: FR-AVENTIS-200716169GDDC

PATIENT
  Age: 39 Year
  Sex: Female

DRUGS (3)
  1. OTHER ANTINEOPLASTIC AGENTS [Suspect]
     Route: 042
     Dates: start: 20061206, end: 20061206
  2. TAXOTERE [Suspect]
     Route: 042
     Dates: start: 20061206, end: 20061206
  3. CISPLATIN [Suspect]
     Route: 042
     Dates: start: 20061206, end: 20061206

REACTIONS (2)
  - COUGH [None]
  - LUNG DISORDER [None]
